FAERS Safety Report 23982419 (Version 1)
Quarter: 2024Q2

REPORT INFORMATION
  Report Type: Spontaneous
  Country: US (occurrence: US)
  Receive Date: 20240617
  Receipt Date: 20240617
  Transmission Date: 20240716
  Serious: No
  Sender: FDA-Public Use
  Company Number: US-ABBVIE-5747209

PATIENT

DRUGS (3)
  1. FLUOROMETHOLONE [Suspect]
     Active Substance: FLUOROMETHOLONE
     Indication: Product used for unknown indication
     Dosage: 0.1% 5 ML
     Route: 065
  2. FLUOROMETHOLONE [Suspect]
     Active Substance: FLUOROMETHOLONE
  3. FLUOROMETHOLONE [Suspect]
     Active Substance: FLUOROMETHOLONE

REACTIONS (1)
  - No adverse event [Unknown]
